FAERS Safety Report 15211153 (Version 1)
Quarter: 2018Q3

REPORT INFORMATION
  Report Type: Spontaneous
  Country: US (occurrence: US)
  Receive Date: 20180629
  Receipt Date: 20180629
  Transmission Date: 20181010
  Serious: Yes (Other)
  Sender: FDA-Public Use
  Company Number: None

PATIENT
  Age: 53 Year
  Sex: Female
  Weight: 94.05 kg

DRUGS (10)
  1. BUTRANS [Concomitant]
     Active Substance: BUPRENORPHINE
  2. FLEXARIL [Concomitant]
  3. MELOXACAM [Concomitant]
  4. BOTOX [Concomitant]
     Active Substance: ONABOTULINUMTOXINA
  5. LOSARTAN. [Concomitant]
     Active Substance: LOSARTAN
  6. AMITIZA [Suspect]
     Active Substance: LUBIPROSTONE
     Indication: CONSTIPATION
     Dosage: QUANTITY:4 CAPSULE(S);OTHER FREQUENCY:BREAKFAST + DINNER;?
     Route: 048
     Dates: start: 20180621, end: 20180625
  7. HYDROCODONE 5 [Concomitant]
  8. PROAIR HFA [Concomitant]
     Active Substance: ALBUTEROL SULFATE
  9. TOPAMAX [Concomitant]
     Active Substance: TOPIRAMATE
  10. VITAMIN D [Concomitant]
     Active Substance: CHOLECALCIFEROL

REACTIONS (1)
  - Palpitations [None]

NARRATIVE: CASE EVENT DATE: 20180623
